FAERS Safety Report 8598090-8 (Version None)
Quarter: 2012Q3

REPORT INFORMATION
  Report Type: 
  Country: None (occurrence: None)
  Receive Date: 20120816
  Receipt Date: 20120807
  Transmission Date: 20120928
  Serious: Yes (Other)
  Sender: FDA-Public Use
  Company Number: US-SANOFI-AVENTIS-2012SA057158

PATIENT
  Sex: Male

DRUGS (5)
  1. AMBIEN [Suspect]
     Route: 048
     Dates: start: 20110101
  2. ATENOLOL [Concomitant]
     Dates: start: 19870101
  3. SIMVASTATIN [Concomitant]
     Dates: start: 20070101
  4. MULTAQ [Concomitant]
     Route: 048
     Dates: end: 20120806
  5. COUMADIN [Concomitant]

REACTIONS (3)
  - ANXIETY [None]
  - SLEEP APNOEA SYNDROME [None]
  - PNEUMONIA ASPIRATION [None]
